FAERS Safety Report 21967599 (Version 2)
Quarter: 2023Q1

REPORT INFORMATION
  Report Type: Spontaneous
  Country: US (occurrence: US)
  Receive Date: 20230208
  Receipt Date: 20230302
  Transmission Date: 20230417
  Serious: No
  Sender: FDA-Public Use
  Company Number: US-BIOGEN-2022BI01171040

PATIENT
  Age: 60 Year
  Sex: Female

DRUGS (3)
  1. TECFIDERA [Suspect]
     Active Substance: DIMETHYL FUMARATE
     Indication: Multiple sclerosis
     Dosage: STARTING DOSE
     Route: 050
     Dates: start: 20130801, end: 20130808
  2. TECFIDERA [Suspect]
     Active Substance: DIMETHYL FUMARATE
     Dosage: MAINTENANCE DOSE
     Route: 050
     Dates: start: 20130809
  3. TECFIDERA [Suspect]
     Active Substance: DIMETHYL FUMARATE
     Route: 050
     Dates: start: 20131224, end: 20210601

REACTIONS (10)
  - Parkinson^s disease [Not Recovered/Not Resolved]
  - Illness [Unknown]
  - Loss of control of legs [Unknown]
  - Loss of consciousness [Unknown]
  - Face injury [Unknown]
  - Tooth loss [Unknown]
  - Blood cholesterol increased [Unknown]
  - Palpitations [Recovered/Resolved with Sequelae]
  - Fall [Recovered/Resolved]
  - Flushing [Not Recovered/Not Resolved]

NARRATIVE: CASE EVENT DATE: 20221101
